FAERS Safety Report 22927212 (Version 3)
Quarter: 2023Q4

REPORT INFORMATION
  Report Type: Spontaneous
  Country: GB (occurrence: GB)
  Receive Date: 20230911
  Receipt Date: 20231018
  Transmission Date: 20240110
  Serious: Yes (Other)
  Sender: FDA-Public Use
  Company Number: GB-002147023-NVSC2023GB179074

PATIENT
  Age: 63 Year
  Sex: Female

DRUGS (2)
  1. LUTATHERA [Suspect]
     Active Substance: LUTETIUM OXODOTREOTIDE LU-177
     Indication: Neuroendocrine tumour
     Dosage: UNK (RECEIVED 3 DOSES)
     Route: 065
  2. LUTATHERA [Suspect]
     Active Substance: LUTETIUM OXODOTREOTIDE LU-177
     Dosage: 7400 MBQ (EVERY 8-12 WEEKS), (VIAL)
     Route: 042
     Dates: start: 20230223, end: 20230622

REACTIONS (3)
  - Renal impairment [Unknown]
  - Full blood count decreased [Unknown]
  - Malaise [Unknown]
